FAERS Safety Report 10221725 (Version 1)
Quarter: 2014Q2

REPORT INFORMATION
  Report Type: Spontaneous
  Country: US (occurrence: US)
  Receive Date: 20140606
  Receipt Date: 20140606
  Transmission Date: 20141212
  Serious: Yes (Other)
  Sender: FDA-Public Use
  Company Number: US-JNJFOC-20140601008

PATIENT
  Age: 54 Year
  Sex: Female
  Weight: 56.7 kg

DRUGS (4)
  1. XARELTO [Suspect]
     Indication: PULMONARY EMBOLISM
     Route: 048
     Dates: start: 20140106, end: 201401
  2. XARELTO [Suspect]
     Indication: PULMONARY EMBOLISM
     Route: 048
     Dates: start: 201401
  3. METHOTREXATE [Concomitant]
     Indication: RHEUMATOID ARTHRITIS
     Dosage: 0.9CC
     Route: 030
     Dates: end: 201312
  4. SIMPONI [Concomitant]
     Indication: RHEUMATOID ARTHRITIS
     Dosage: 0.9CC
     Route: 058
     Dates: start: 201308, end: 20131202

REACTIONS (3)
  - Blood blister [Unknown]
  - Cellulitis [Recovered/Resolved]
  - Drug hypersensitivity [Not Recovered/Not Resolved]
